FAERS Safety Report 6441451-3 (Version None)
Quarter: 2009Q4

REPORT INFORMATION
  Report Type: 
  Country: None (occurrence: None)
  Receive Date: 20091116
  Receipt Date: 20091109
  Transmission Date: 20100525
  Serious: Yes (Hospitalization)
  Sender: FDA-Public Use
  Company Number: A0816084A

PATIENT
  Age: 63 Year
  Sex: Female

DRUGS (7)
  1. FLU VACCINE [Suspect]
     Indication: PROPHYLAXIS
     Route: 065
     Dates: start: 20091101, end: 20091101
  2. COREG [Suspect]
     Indication: HYPERTENSION
     Dosage: 6.25MG TWICE PER DAY
     Route: 048
     Dates: start: 20080101, end: 20090101
  3. COREG CR [Suspect]
     Indication: HYPERTENSION
     Dosage: 10MG PER DAY
     Route: 048
     Dates: start: 20090728
  4. IV FLUIDS [Suspect]
     Indication: DEHYDRATION
     Route: 042
     Dates: start: 20090101, end: 20090101
  5. LISINOPRIL [Concomitant]
  6. PREVACID [Concomitant]
  7. ZOCOR [Concomitant]

REACTIONS (25)
  - ACTIVITIES OF DAILY LIVING IMPAIRED [None]
  - ADVERSE EVENT [None]
  - ANAEMIA [None]
  - ASTHENIA [None]
  - BLOOD PRESSURE INADEQUATELY CONTROLLED [None]
  - BLOOD PRESSURE INCREASED [None]
  - BREAST DISCOMFORT [None]
  - BREAST SWELLING [None]
  - CHEST PAIN [None]
  - COUGH [None]
  - DEHYDRATION [None]
  - DRUG INEFFECTIVE [None]
  - DRY MOUTH [None]
  - FATIGUE [None]
  - FEELING COLD [None]
  - HYPOTENSION [None]
  - LOSS OF CONSCIOUSNESS [None]
  - NASAL CONGESTION [None]
  - NASAL DRYNESS [None]
  - PALPITATIONS [None]
  - PERIPHERAL COLDNESS [None]
  - RENAL DISORDER [None]
  - RENIN INCREASED [None]
  - SOMNOLENCE [None]
  - URINARY RETENTION [None]
